FAERS Safety Report 11721200 (Version 1)
Quarter: 2015Q4

REPORT INFORMATION
  Report Type: Spontaneous
  Country: US (occurrence: US)
  Receive Date: 20151110
  Receipt Date: 20151110
  Transmission Date: 20160304
  Serious: Yes (Hospitalization)
  Sender: FDA-Public Use
  Company Number: US-NOVOPROD-469598

PATIENT
  Age: 81 Year
  Sex: Female
  Weight: 61.22 kg

DRUGS (2)
  1. VICTOZA [Suspect]
     Active Substance: LIRAGLUTIDE
     Indication: TYPE 2 DIABETES MELLITUS
     Dosage: UNK
     Route: 058
     Dates: end: 201510
  2. VICTOZA [Suspect]
     Active Substance: LIRAGLUTIDE
     Dosage: UNK
     Route: 058
     Dates: start: 20151026

REACTIONS (5)
  - Urinary tract infection [Unknown]
  - Hepatic enzyme increased [Unknown]
  - Injection site reaction [Unknown]
  - Food poisoning [Recovered/Resolved]
  - Pancreatic enzymes increased [Unknown]

NARRATIVE: CASE EVENT DATE: 201510
